FAERS Safety Report 7997108-0 (Version None)
Quarter: 2011Q4

REPORT INFORMATION
  Report Type: 
  Country: None (occurrence: None)
  Receive Date: 20111216
  Receipt Date: 20111205
  Transmission Date: 20120403
  Serious: Yes (Other)
  Sender: FDA-Public Use
  Company Number: 2011MA017318

PATIENT
  Age: 53 Year
  Sex: Female

DRUGS (2)
  1. PHENYTOIN [Suspect]
     Indication: MENINGIOMA
     Dosage: 300 MG;QD;
  2. DEXAMETHASONE [Suspect]
     Indication: MENINGIOMA
     Dosage: 24 GM;QD;

REACTIONS (2)
  - LIVER FUNCTION TEST ABNORMAL [None]
  - DRUG RASH WITH EOSINOPHILIA AND SYSTEMIC SYMPTOMS [None]
